FAERS Safety Report 4789445-8 (Version None)
Quarter: 2005Q4

REPORT INFORMATION
  Report Type: 
  Country: None (occurrence: None)
  Receive Date: 20051004
  Receipt Date: 20051004
  Transmission Date: 20060501
  Serious: Yes (Hospitalization)
  Sender: FDA-Public Use
  Company Number: None

PATIENT
  Age: 77 Year
  Sex: Male

DRUGS (1)
  1. PENICILLIN G [Suspect]
     Indication: ENDOCARDITIS
     Dosage: 3 MILLION UNITS IV
     Route: 042
     Dates: start: 20050404, end: 20050412

REACTIONS (1)
  - NEPHRITIS INTERSTITIAL [None]
